FAERS Safety Report 24358564 (Version 5)
Quarter: 2024Q4

REPORT INFORMATION
  Report Type: Spontaneous
  Country: US (occurrence: US)
  Receive Date: 20240924
  Receipt Date: 20241226
  Transmission Date: 20250115
  Serious: Yes (Life-Threatening, Hospitalization, Other)
  Sender: PFIZER
  Company Number: US-PFIZER INC-202400260209

PATIENT
  Age: 75 Year
  Sex: Female
  Weight: 84.37 kg

DRUGS (7)
  1. PAXLOVID [Suspect]
     Active Substance: NIRMATRELVIR\RITONAVIR
     Indication: COVID-19 treatment
     Dosage: UNK
     Dates: start: 2021
  2. PAXLOVID [Suspect]
     Active Substance: NIRMATRELVIR\RITONAVIR
     Dosage: UNK
     Dates: start: 202302
  3. HEPARIN SODIUM [Suspect]
     Active Substance: HEPARIN SODIUM
     Indication: Anticoagulant therapy
     Dosage: 12 DF; 12 UNITS
     Route: 042
     Dates: start: 202306, end: 2023
  4. LEVOTHYROXINE SODIUM [Suspect]
     Active Substance: LEVOTHYROXINE SODIUM
     Dosage: UNK
  5. PROGESTERONE [Suspect]
     Active Substance: PROGESTERONE
     Indication: Endometrial hyperplasia
     Dosage: 100 MG
     Dates: start: 201906
  6. PROGESTERONE [Suspect]
     Active Substance: PROGESTERONE
     Indication: Amenorrhoea
     Dosage: 100 MG
     Dates: start: 202302, end: 202303
  7. VITAMIN D3 [Suspect]
     Active Substance: CHOLECALCIFEROL
     Dosage: UNK

REACTIONS (10)
  - Pulmonary thrombosis [Unknown]
  - Pulmonary embolism [Unknown]
  - Diabetes mellitus [Unknown]
  - Postmenopausal haemorrhage [Recovered/Resolved with Sequelae]
  - Thrombosis [Unknown]
  - Abnormal menstrual clots [Recovered/Resolved with Sequelae]
  - Pollakiuria [Unknown]
  - Uterine disorder [Unknown]
  - Dyspnoea [Unknown]
  - Heart rate increased [Unknown]

NARRATIVE: CASE EVENT DATE: 20230101
